FAERS Safety Report 4799723-4 (Version None)
Quarter: 2005Q4

REPORT INFORMATION
  Report Type: 
  Country: None (occurrence: None)
  Receive Date: 20051011
  Receipt Date: 20051011
  Transmission Date: 20060501
  Serious: Yes (Other)
  Sender: FDA-Public Use
  Company Number: None

PATIENT
  Sex: Female
  Weight: 91 kg

DRUGS (2)
  1. MEDROXYPROGESTERONE ACETATE [Suspect]
     Indication: CONTRACEPTION
     Dosage: 150MG IM Q 3 MON
     Route: 030
     Dates: start: 20050418, end: 20051003
  2. MEDROXYPROGESTERONE ACETATE [Suspect]

REACTIONS (2)
  - METRORRHAGIA [None]
  - VAGINAL HAEMORRHAGE [None]
